FAERS Safety Report 22782341 (Version 2)
Quarter: 2023Q4

REPORT INFORMATION
  Report Type: Spontaneous
  Country: IE (occurrence: US)
  Receive Date: 20230803
  Receipt Date: 20231002
  Transmission Date: 20240109
  Serious: Yes (Death)
  Sender: FDA-Public Use
  Company Number: IE-PFIZER INC-PV202300133774

PATIENT
  Age: 84 Year
  Sex: Male

DRUGS (3)
  1. ALFENTANIL HYDROCHLORIDE [Suspect]
     Active Substance: ALFENTANIL HYDROCHLORIDE
     Indication: Pain management
     Dosage: UNK
     Route: 058
  2. MORPHINE SULFATE [Suspect]
     Active Substance: MORPHINE SULFATE
     Indication: Pain management
     Dosage: UNK
     Route: 058
  3. OXYCODONE [Suspect]
     Active Substance: OXYCODONE
     Indication: Pain management
     Dosage: UNK
     Route: 058

REACTIONS (3)
  - Hyperaesthesia [Fatal]
  - Allodynia [Fatal]
  - Neoplasm malignant [Fatal]
